FAERS Safety Report 25475234 (Version 3)
Quarter: 2025Q4

REPORT INFORMATION
  Report Type: Report from Study
  Country: GB (occurrence: GB)
  Receive Date: 20250624
  Receipt Date: 20251112
  Transmission Date: 20260118
  Serious: Yes (Hospitalization)
  Sender: AMGEN
  Company Number: GB-Vifor (International) Inc.-VIT-2024-01767

PATIENT
  Age: 75 Year
  Sex: Male
  Weight: 76 kg

DRUGS (55)
  1. AVACOPAN [Suspect]
     Active Substance: AVACOPAN
     Indication: Anti-neutrophil cytoplasmic antibody positive vasculitis
     Dosage: 30,MG,BID
     Route: 048
     Dates: start: 20240213, end: 202507
  2. RITUXIMAB [Concomitant]
     Active Substance: RITUXIMAB
     Indication: Anti-neutrophil cytoplasmic antibody positive vasculitis
     Dosage: 1 G, SINGLE IV INFUSION, COMPLETION OF PLANNED COURSE
     Route: 040
     Dates: start: 20240125, end: 20240125
  3. RITUXIMAB [Concomitant]
     Active Substance: RITUXIMAB
     Dosage: 1 G, SINGLE IV INFUSION, COMPLETION OF PLANNED COURSE
     Route: 040
     Dates: start: 20240208, end: 20240208
  4. RITUXIMAB [Concomitant]
     Active Substance: RITUXIMAB
     Dosage: 1000 MG, SINGLE IV INFUSION, COMPLETION OF PLANNED COURSE
     Route: 040
     Dates: start: 20240830, end: 20240830
  5. RITUXIMAB [Concomitant]
     Active Substance: RITUXIMAB
     Dosage: 1000 MG, SINGLE IV INFUSION
     Route: 040
     Dates: start: 20250225, end: 20250225
  6. RITUXIMAB [Concomitant]
     Active Substance: RITUXIMAB
     Dosage: 1000 MG SINGLE IV INFUSION
     Route: 040
     Dates: start: 20250919, end: 20250919
  7. CYCLOPHOSPHAMIDE [Concomitant]
     Active Substance: CYCLOPHOSPHAMIDE
     Indication: Anti-neutrophil cytoplasmic antibody positive vasculitis
     Dosage: 0.6 G 2 DOSES INFUSION. COMPLETION OF PLANNED COURSE
     Route: 040
     Dates: start: 20240123, end: 20240213
  8. ALLOPURINOL [Concomitant]
     Active Substance: ALLOPURINOL
     Indication: Gout
     Dosage: OD
     Route: 048
     Dates: start: 20161024, end: 202402
  9. Macrogol comp [Concomitant]
     Indication: Constipation
     Dosage: MACROGOL COMPOUND ORAL POWDER SACHETS NPF SUGAR FREE, BD
     Route: 048
     Dates: start: 20240117
  10. AMITRIPTYLINE [Concomitant]
     Active Substance: AMITRIPTYLINE
     Indication: Anxiety
     Dosage: OD
     Route: 048
     Dates: start: 20110805
  11. COTRIMOXAZOLE [Concomitant]
     Active Substance: SULFAMETHOXAZOLE\TRIMETHOPRIM
     Indication: Antibiotic prophylaxis
     Dosage: 480,MG,QD
     Route: 048
     Dates: start: 20240123
  12. FOLIC ACID [Concomitant]
     Active Substance: FOLIC ACID
     Indication: Anaemia
     Dosage: 5,MG,QD
     Route: 048
     Dates: start: 20221128
  13. FUROSEMIDE [Concomitant]
     Active Substance: FUROSEMIDE
     Indication: Diuretic therapy
     Dosage: TWICE DAILY (BD)
     Route: 048
     Dates: start: 20240123, end: 20240221
  14. FUROSEMIDE [Concomitant]
     Active Substance: FUROSEMIDE
     Dosage: TWICE DAILY (BD)
     Route: 048
     Dates: start: 20240222, end: 20240227
  15. HYPROMELLOSES [Concomitant]
     Active Substance: HYPROMELLOSES
     Indication: Dry eye
     Dosage: 1,DROP,UNK, 4 DROPS
     Route: 065
     Dates: start: 20240120
  16. OXYCODONE [Concomitant]
     Active Substance: OXYCODONE
     Indication: Analgesic therapy
     Dosage: MR
     Route: 048
     Dates: start: 20240120
  17. OXYCODONE [Concomitant]
     Active Substance: OXYCODONE
     Indication: Analgesic therapy
     Dosage: EVERY 4 HOURS AS NEEDED
     Route: 048
     Dates: start: 20240124
  18. METOPROLOL [Concomitant]
     Active Substance: METOPROLOL
     Indication: Atrial fibrillation
     Dosage: THREE TIMES DAILY
     Route: 048
     Dates: start: 20240124
  19. ACETAMINOPHEN [Concomitant]
     Active Substance: ACETAMINOPHEN
     Indication: Analgesic therapy
     Dosage: 4 X DAY AS NEEDED
     Route: 048
     Dates: start: 20240124
  20. PREDNISOLONE [Concomitant]
     Active Substance: PREDNISOLONE
     Indication: Anti-neutrophil cytoplasmic antibody positive vasculitis
     Dosage: 60 MG, QD COMPLETION OF PLANNED COURSE
     Route: 048
     Dates: start: 20240123, end: 20240130
  21. PREDNISOLONE [Concomitant]
     Active Substance: PREDNISOLONE
     Indication: Infection
     Dosage: 30 MG, QD COMPLETION OF PLANNED COURSE
     Route: 048
     Dates: start: 20240131, end: 20240206
  22. PREDNISOLONE [Concomitant]
     Active Substance: PREDNISOLONE
     Dosage: 25 MG, QD COMPLETION OF PLANNED COURSE
     Route: 048
     Dates: start: 20240207, end: 20240218
  23. PREDNISOLONE [Concomitant]
     Active Substance: PREDNISOLONE
     Dosage: 50 MG, QD COMPLETION OF PLANNED COURSE
     Route: 048
     Dates: start: 20240218, end: 20240221
  24. PREDNISOLONE [Concomitant]
     Active Substance: PREDNISOLONE
     Dosage: 20,MG,QD COMPLETION OF PLANNED COURSE
     Route: 048
     Dates: start: 20240222, end: 20240228
  25. PREDNISOLONE [Concomitant]
     Active Substance: PREDNISOLONE
     Dosage: 10 MG, OD
     Route: 048
     Dates: start: 20240227, end: 20240227
  26. PREDNISOLONE [Concomitant]
     Active Substance: PREDNISOLONE
     Dosage: 15 MG, OD
     Route: 048
     Dates: start: 20240229, end: 20240304
  27. PREDNISOLONE [Concomitant]
     Active Substance: PREDNISOLONE
     Dosage: 10 MG, OD COMPLETION OF PLANNED COURSE
     Route: 048
     Dates: start: 20240305, end: 20240311
  28. PREDNISOLONE [Concomitant]
     Active Substance: PREDNISOLONE
     Dosage: 5 MG, OD COMPLETION OF PLANNED COURSE
     Route: 048
     Dates: start: 20240312, end: 202403
  29. PREDNISOLONE [Concomitant]
     Active Substance: PREDNISOLONE
     Dosage: 40 MG, OD
     Route: 048
     Dates: start: 20250609
  30. PYRIDOSTIGMINE [Concomitant]
     Active Substance: PYRIDOSTIGMINE
     Indication: Myasthenia gravis
     Dosage: 60,MG,TID
     Route: 048
     Dates: start: 20100309
  31. SENNA [Concomitant]
     Active Substance: SENNOSIDES
     Indication: Constipation
     Dosage: 15,MG,QD
     Route: 048
     Dates: start: 20240123, end: 20240228
  32. SIMVASTATIN [Concomitant]
     Active Substance: SIMVASTATIN
     Indication: Blood cholesterol increased
     Dosage: 20,MG,QD
     Route: 048
     Dates: start: 20070607
  33. TAMSULOSIN [Concomitant]
     Active Substance: TAMSULOSIN
     Indication: Benign prostatic hyperplasia
     Dosage: 400,MUG,QD
     Route: 048
     Dates: start: 20240123, end: 20240227
  34. EDOXABAN [Concomitant]
     Active Substance: EDOXABAN
     Indication: Atrial fibrillation
     Dosage: 30,MG,QD
     Route: 048
     Dates: start: 20240129
  35. METHYLPREDNISOLONE [Concomitant]
     Active Substance: METHYLPREDNISOLONE
     Indication: Anti-neutrophil cytoplasmic antibody positive vasculitis
     Dosage: 1 G, SINGLE IV INFUSION
     Route: 040
     Dates: start: 20240120, end: 20240122
  36. METHYLPREDNISOLONE [Concomitant]
     Active Substance: METHYLPREDNISOLONE
     Indication: Premedication
     Dosage: 0.1 G, SINGLE IV INFUSION
     Route: 040
     Dates: start: 20240125, end: 20240125
  37. METHYLPREDNISOLONE [Concomitant]
     Active Substance: METHYLPREDNISOLONE
     Dosage: 0.1 G, SINGLE IV INFUSION
     Route: 040
     Dates: start: 20240208, end: 20240208
  38. METHYLPREDNISOLONE [Concomitant]
     Active Substance: METHYLPREDNISOLONE
     Dosage: 100 MG, SINGLE IV INFUSION
     Route: 040
     Dates: start: 20240830, end: 20240830
  39. METHYLPREDNISOLONE [Concomitant]
     Active Substance: METHYLPREDNISOLONE
     Dosage: 100 MG, SINGLE IV INFUSION
     Route: 040
     Dates: start: 20250225, end: 20250225
  40. METHYLPREDNISOLONE [Concomitant]
     Active Substance: METHYLPREDNISOLONE
     Dosage: 100 MG, SINGLE IV INFUSION
     Route: 040
     Dates: start: 20250919, end: 20250919
  41. FAMOTIDINE [Concomitant]
     Active Substance: FAMOTIDINE
     Indication: Gastrointestinal disorder prophylaxis
     Dosage: 20,MG,BID
     Route: 048
     Dates: start: 20240121
  42. DERMOL [Concomitant]
     Active Substance: BENZALKONIUM CHLORIDE\CHLORHEXIDINE HYDROCHLORIDE\ISOPROPYL MYRISTATE\PARAFFIN
     Indication: Dry skin
     Dosage: UNK,UNK,BID
     Route: 061
     Dates: start: 20240124
  43. DEVICE\XYLITOL [Concomitant]
     Active Substance: DEVICE\XYLITOL
     Indication: Dry mouth
     Dosage: TWICE DAILY (BD); 1 APPLICATION
     Route: 048
     Dates: start: 20240227
  44. AMOXICILLIN\CLAVULANATE POTASSIUM [Concomitant]
     Active Substance: AMOXICILLIN\CLAVULANATE POTASSIUM
     Indication: Antibiotic therapy
     Dosage: THREE TIMES DAILY
     Route: 040
     Dates: start: 20240225
  45. AMOXICILLIN\CLAVULANATE POTASSIUM [Concomitant]
     Active Substance: AMOXICILLIN\CLAVULANATE POTASSIUM
     Indication: Infection
     Dosage: THREE TIMES DAILY; DOSE: 500+125MG TABLET
     Route: 048
     Dates: start: 20240224, end: 20240225
  46. AMOXICILLIN\CLAVULANATE POTASSIUM [Concomitant]
     Active Substance: AMOXICILLIN\CLAVULANATE POTASSIUM
     Dosage: THREE TIMES DAILY; DOSE: 500+125MG TABLET
     Route: 040
     Dates: start: 20250608
  47. FERROUS SULFATE [Concomitant]
     Active Substance: FERROUS SULFATE
     Indication: Anaemia
     Dosage: DAILY (OD)
     Route: 048
     Dates: start: 20240227
  48. HYDROXOCOBALAMIN [Concomitant]
     Active Substance: HYDROXOCOBALAMIN
     Indication: Vitamin B12 deficiency
     Dosage: 3 TIMES A WEEK
     Route: 030
     Dates: start: 20240226
  49. IPRATROPIUM BROMIDE [Concomitant]
     Active Substance: IPRATROPIUM BROMIDE
     Indication: Dyspnoea
     Dosage: NEBULIZER; 250 MCG 4 TIMES A DAY AS REQUIRED
     Dates: start: 20240228
  50. LACTULOSE [Concomitant]
     Active Substance: LACTULOSE
     Indication: Constipation
     Dosage: TWICE DAILY (BD)
     Route: 048
     Dates: start: 20240218
  51. ALBUTEROL [Concomitant]
     Active Substance: ALBUTEROL
     Indication: Dyspnoea
     Dosage: NEBULIZER; 4 TIMES A DAY AS REQUIRED
     Dates: start: 20240225
  52. Compound sodium lactate (hartmann^s solution) [Concomitant]
     Indication: Fluid replacement
     Dosage: SINGLE IV INFUSION
     Route: 040
     Dates: start: 20240218, end: 20240218
  53. Compound sodium lactate (hartmann^s solution) [Concomitant]
     Dosage: SINGLE IV INFUSION
     Route: 040
     Dates: start: 20240220, end: 20240220
  54. MORPHINE [Concomitant]
     Active Substance: MORPHINE
     Indication: Analgesic therapy
     Dosage: EVERY 4 HOURS AS NEEDED
     Route: 048
     Dates: start: 20240218, end: 20240218
  55. FLUDROCORTISONE [Concomitant]
     Active Substance: FLUDROCORTISONE
     Indication: Orthostatic hypotension
     Dosage: 50,MUG,QD HELD TEMPORARILY DUE TO CHEST INFECTION
     Route: 048
     Dates: start: 20240220, end: 20240226

REACTIONS (7)
  - H1N1 influenza [Recovered/Resolved]
  - Periprosthetic fracture [Recovered/Resolved]
  - Rib fracture [Recovering/Resolving]
  - Chronic obstructive pulmonary disease [Recovering/Resolving]
  - Viral upper respiratory tract infection [Not Recovered/Not Resolved]
  - Small intestinal obstruction [Recovered/Resolved]
  - Inguinal hernia [Recovered/Resolved]

NARRATIVE: CASE EVENT DATE: 20240217
